FAERS Safety Report 23085252 (Version 2)
Quarter: 2024Q2

REPORT INFORMATION
  Report Type: Spontaneous
  Country: US (occurrence: US)
  Receive Date: 20231019
  Receipt Date: 20240409
  Transmission Date: 20240716
  Serious: No
  Sender: FDA-Public Use
  Company Number: US-MYLANLABS-2023M1108110

PATIENT
  Sex: Female

DRUGS (5)
  1. GABAPENTIN [Suspect]
     Active Substance: GABAPENTIN
     Indication: Arthralgia
     Dosage: UNK
     Route: 065
     Dates: start: 2023
  2. GABAPENTIN [Suspect]
     Active Substance: GABAPENTIN
     Indication: Myalgia
  3. MELOXICAM [Suspect]
     Active Substance: MELOXICAM
     Indication: Arthralgia
     Dosage: UNK
     Route: 065
     Dates: start: 2023
  4. MELOXICAM [Suspect]
     Active Substance: MELOXICAM
     Indication: Myalgia
  5. REMODULIN [Concomitant]
     Active Substance: TREPROSTINIL
     Indication: Pulmonary arterial hypertension
     Dosage: 0.03139 MICROGRAM/KILOGRAM (START APR-2023)
     Route: 058

REACTIONS (1)
  - Therapy non-responder [Unknown]

NARRATIVE: CASE EVENT DATE: 20230101
